FAERS Safety Report 9071781 (Version 1)
Quarter: 2013Q1

REPORT INFORMATION
  Report Type: Report from Study
  Country: US (occurrence: US)
  Receive Date: 20130129
  Receipt Date: 20130129
  Transmission Date: 20140127
  Serious: No
  Sender: FDA-Public Use
  Company Number: US-ABBOTT-12P-163-0924385-00

PATIENT
  Age: 40 Year
  Sex: Female

DRUGS (5)
  1. HUMIRA 40 MG/0.8 ML PEN [Suspect]
     Indication: PSORIASIS
     Route: 058
     Dates: end: 20120210
  2. HUMIRA 40 MG/0.8 ML PEN [Suspect]
     Dosage: INTIAL DOSE
     Route: 058
     Dates: start: 20120401, end: 20120401
  3. EFFEXOR XR [Concomitant]
     Indication: ANXIETY
  4. CLOBETASOL [Concomitant]
     Indication: SKIN DISORDER
  5. CLONAZEPAM [Concomitant]
     Indication: ANXIETY

REACTIONS (1)
  - Staphylococcal infection [Recovered/Resolved]
